FAERS Safety Report 5103699-X (Version None)
Quarter: 2006Q3

REPORT INFORMATION
  Report Type: 
  Country: None (occurrence: None)
  Receive Date: 20060913
  Receipt Date: 20060911
  Transmission Date: 20061208
  Serious: Yes (Death)
  Sender: FDA-Public Use
  Company Number: 2006AP04224

PATIENT
  Age: 69 Year
  Sex: Male

DRUGS (4)
  1. IRESSA [Suspect]
     Indication: LUNG SQUAMOUS CELL CARCINOMA STAGE UNSPECIFIED
     Route: 048
     Dates: start: 20050401, end: 20051101
  2. IRESSA [Suspect]
     Route: 048
     Dates: end: 20060801
  3. PACLITAXEL [Concomitant]
     Dates: start: 20040101, end: 20050401
  4. CISPLATIN [Concomitant]
     Dates: start: 20040101, end: 20050401

REACTIONS (3)
  - LUNG SQUAMOUS CELL CARCINOMA STAGE UNSPECIFIED [None]
  - MALIGNANT NEOPLASM PROGRESSION [None]
  - PLATELET COUNT DECREASED [None]
